FAERS Safety Report 5555537-9 (Version None)
Quarter: 2007Q4

REPORT INFORMATION
  Report Type: 
  Country: None (occurrence: None)
  Receive Date: 20071213
  Receipt Date: 20071206
  Transmission Date: 20080405
  Serious: Yes (Hospitalization)
  Sender: FDA-Public Use
  Company Number: IT-ABBOTT-07P-083-0424026-00

PATIENT
  Sex: Male
  Weight: 75 kg

DRUGS (2)
  1. HUMIRA [Suspect]
     Indication: RHEUMATOID ARTHRITIS
     Dosage: 80 MG ONCE PER MONTH
     Dates: start: 20041101, end: 20061127
  2. SULFASALAZINE [Concomitant]
     Dates: start: 20041101

REACTIONS (4)
  - GLOMERULONEPHRITIS [None]
  - NEPHROTIC SYNDROME [None]
  - RENAL FAILURE [None]
  - RENAL FAILURE ACUTE [None]
